FAERS Safety Report 13088702 (Version 2)
Quarter: 2017Q1

REPORT INFORMATION
  Report Type: Report from Study
  Country: US (occurrence: US)
  Receive Date: 20170105
  Receipt Date: 20170116
  Transmission Date: 20170428
  Serious: No
  Sender: FDA-Public Use
  Company Number: US-ASTRAZENECA-2016SF29713

PATIENT
  Age: 26600 Day
  Sex: Female
  Weight: 54.4 kg

DRUGS (12)
  1. CALCIUM CARBONATE. [Concomitant]
     Active Substance: CALCIUM CARBONATE
  2. METAMUCIL [Concomitant]
     Active Substance: PLANTAGO SEED
  3. TRIAMCINOLONE ACETONID [Concomitant]
  4. TAGRISSO [Suspect]
     Active Substance: OSIMERTINIB
     Indication: NON-SMALL CELL LUNG CANCER
     Route: 048
  5. CALCIUM WITH D3 [Concomitant]
     Indication: MENOPAUSAL SYMPTOMS
  6. MULTIVITAMINS [Concomitant]
     Active Substance: VITAMINS
  7. VITAMIN D3 [Concomitant]
     Active Substance: CHOLECALCIFEROL
  8. GENERIC NORVASC [Concomitant]
     Indication: BLOOD PRESSURE ABNORMAL
  9. GENERIC LIPITOR [Concomitant]
     Active Substance: ATORVASTATIN CALCIUM
     Indication: BLOOD CHOLESTEROL ABNORMAL
  10. CALCIUM WITH D3 [Concomitant]
     Indication: BONE DISORDER
  11. FISH OIL [Concomitant]
     Active Substance: FISH OIL
     Indication: CARDIAC DISORDER
  12. TAGRISSO [Suspect]
     Active Substance: OSIMERTINIB
     Indication: NON-SMALL CELL LUNG CANCER
     Route: 048
     Dates: start: 20161120

REACTIONS (12)
  - Rash erythematous [Unknown]
  - Nipple disorder [Unknown]
  - Skin irritation [Unknown]
  - Diarrhoea [Unknown]
  - Pruritus [Unknown]
  - Off label use [Unknown]
  - Intentional product misuse [Unknown]
  - Gastrooesophageal reflux disease [Unknown]
  - Drug dose omission [Unknown]
  - Pain [Unknown]
  - Haemorrhage [Unknown]
  - Nasal dryness [Unknown]

NARRATIVE: CASE EVENT DATE: 20161120
